FAERS Safety Report 7649379-8 (Version None)
Quarter: 2011Q3

REPORT INFORMATION
  Report Type: 
  Country: None (occurrence: None)
  Receive Date: 20110721
  Receipt Date: 20110714
  Transmission Date: 20111222
  Serious: Yes (Hospitalization, Other)
  Sender: FDA-Public Use
  Company Number: 2011029194

PATIENT
  Sex: Female

DRUGS (1)
  1. VIVAGLOBIN [Suspect]
     Indication: SELECTIVE IGG SUBCLASS DEFICIENCY
     Dosage: SUBCUTANEOUS
     Route: 058
     Dates: start: 20070701, end: 20110301

REACTIONS (2)
  - VOMITING [None]
  - RESPIRATORY TRACT INFECTION [None]
